FAERS Safety Report 5140984-X (Version None)
Quarter: 2006Q4

REPORT INFORMATION
  Report Type: 
  Country: None (occurrence: None)
  Receive Date: 20061027
  Receipt Date: 20061027
  Transmission Date: 20070319
  Serious: Yes (Hospitalization)
  Sender: FDA-Public Use
  Company Number: None

PATIENT
  Age: 59 Year
  Sex: Male

DRUGS (23)
  1. BACTRIM DS [Suspect]
     Indication: DIABETES MELLITUS
     Dosage: DS 1 PO BID
     Route: 048
     Dates: start: 20060913, end: 20060923
  2. BACTRIM DS [Suspect]
     Indication: INFECTION
     Dosage: DS 1 PO BID
     Route: 048
     Dates: start: 20060913, end: 20060923
  3. BACTRIM DS [Suspect]
     Indication: URINARY TRACT INFECTION
     Dosage: DS 1 PO BID
     Route: 048
     Dates: start: 20060913, end: 20060923
  4. DIGOXIN [Suspect]
     Dosage: 0.25MG PO DAILY
     Route: 048
     Dates: start: 20051021, end: 20060923
  5. ISORDIL [Concomitant]
  6. GEMFIBROZIL [Concomitant]
  7. DIGOXIN [Concomitant]
  8. COUMADIN [Concomitant]
  9. BACTRIM DS [Concomitant]
  10. FELODIPINE [Concomitant]
  11. OMEPRAZOLE [Concomitant]
  12. FERROUS SULFATE TAB [Concomitant]
  13. PERCOCET [Concomitant]
  14. LASIX [Concomitant]
  15. SIMETHICONE [Concomitant]
  16. ROSIGLITAZONE [Concomitant]
  17. SIMVASTATIN [Concomitant]
  18. METFORMIN HCL [Concomitant]
  19. ALLOPURINOL [Concomitant]
  20. ALDACTONE [Concomitant]
  21. ENALAPRIL MALEATE [Concomitant]
  22. ALBUTEROL [Concomitant]
  23. METOPROLOL XL [Concomitant]

REACTIONS (2)
  - BRADYCARDIA [None]
  - RENAL FAILURE ACUTE [None]
